FAERS Safety Report 12564037 (Version 1)
Quarter: 2016Q3

REPORT INFORMATION
  Report Type: Spontaneous
  Country: US (occurrence: US)
  Receive Date: 20160718
  Receipt Date: 20160718
  Transmission Date: 20161109
  Serious: No
  Sender: FDA-Public Use
  Company Number: US-BAXTER-2016BAX035013

PATIENT
  Sex: Female

DRUGS (1)
  1. FLUCONAZOLE INJECTION, USP [Suspect]
     Active Substance: FLUCONAZOLE
     Indication: PRODUCT USED FOR UNKNOWN INDICATION
     Dosage: PER DAY
     Route: 065

REACTIONS (3)
  - Abdominal discomfort [Unknown]
  - Dry mouth [Unknown]
  - Nausea [Unknown]
